FAERS Safety Report 7798932-X (Version None)
Quarter: 2011Q4

REPORT INFORMATION
  Report Type: 
  Country: None (occurrence: None)
  Receive Date: 20111006
  Receipt Date: 20111003
  Transmission Date: 20120403
  Serious: No
  Sender: FDA-Public Use
  Company Number: US-PFIZER INC-2011235811

PATIENT
  Sex: Female

DRUGS (1)
  1. ESTRING [Suspect]
     Dosage: 2 MG, UNK
     Route: 067
     Dates: end: 20110101

REACTIONS (3)
  - RASH [None]
  - PELVIC PAIN [None]
  - POOR QUALITY DRUG ADMINISTERED [None]
